FAERS Safety Report 7578378-X (Version None)
Quarter: 2011Q2

REPORT INFORMATION
  Report Type: 
  Country: None (occurrence: None)
  Receive Date: 20110628
  Receipt Date: 20110622
  Transmission Date: 20111010
  Serious: Yes (Other)
  Sender: FDA-Public Use
  Company Number: GB-TEVA-287785ISR

PATIENT
  Age: 44 Year
  Sex: Male

DRUGS (4)
  1. DIAZEPAM [Suspect]
  2. CLOZAPINE [Suspect]
     Indication: SCHIZOPHRENIA
     Dates: start: 20001027, end: 20011228
  3. NEFOPAM [Suspect]
  4. DIHYDROCODEINE BITARTRATE INJ [Suspect]

REACTIONS (6)
  - NEOPLASM MALIGNANT [None]
  - HYPOTENSION [None]
  - OVERDOSE [None]
  - CIRCULATORY COLLAPSE [None]
  - DIZZINESS [None]
  - WEIGHT DECREASED [None]
